FAERS Safety Report 4651777-1 (Version None)
Quarter: 2005Q2

REPORT INFORMATION
  Report Type: 
  Country: None (occurrence: None)
  Receive Date: 20050504
  Receipt Date: 20050420
  Transmission Date: 20051028
  Serious: Yes (Hospitalization, Other)
  Sender: FDA-Public Use
  Company Number: GB-JNJFOC-20050404612

PATIENT
  Sex: Male
  Weight: 74 kg

DRUGS (7)
  1. REMICADE [Suspect]
     Indication: RHEUMATOID ARTHRITIS
     Route: 042
  2. METHOTREXATE [Concomitant]
  3. FOLIC ACID [Concomitant]
  4. AMYTRIPTYLINE [Concomitant]
  5. REMEDEINE [Concomitant]
  6. REMEDEINE [Concomitant]
  7. TRAMADOL [Concomitant]

REACTIONS (1)
  - PROSTATE CANCER [None]
